FAERS Safety Report 19563832 (Version 2)
Quarter: 2021Q3

REPORT INFORMATION
  Report Type: Report from Study
  Country: CA (occurrence: CA)
  Receive Date: 20210714
  Receipt Date: 20210723
  Transmission Date: 20211014
  Serious: Yes (Hospitalization)
  Sender: FDA-Public Use
  Company Number: CA-ASTRAZENECA-2021A580357

PATIENT
  Age: 26221 Day
  Sex: Female

DRUGS (7)
  1. MONTELUKAST [Concomitant]
     Active Substance: MONTELUKAST SODIUM
  2. SYMBICORT [Concomitant]
     Active Substance: BUDESONIDE\FORMOTEROL FUMARATE DIHYDRATE
  3. PREDNISONE. [Concomitant]
     Active Substance: PREDNISONE
  4. VENTOLIN [Concomitant]
     Active Substance: ALBUTEROL SULFATE
  5. SPIRIVA [Concomitant]
     Active Substance: TIOTROPIUM BROMIDE MONOHYDRATE
  6. ZENHALE [Concomitant]
     Active Substance: FORMOTEROL FUMARATE\MOMETASONE FUROATE
  7. FASENRA [Suspect]
     Active Substance: BENRALIZUMAB
     Indication: ASTHMA
     Route: 058
     Dates: start: 20210119

REACTIONS (3)
  - Acute myocardial infarction [Recovering/Resolving]
  - Arteriosclerosis [Unknown]
  - Chest pain [Recovering/Resolving]

NARRATIVE: CASE EVENT DATE: 20210601
